FAERS Safety Report 12488301 (Version 2)
Quarter: 2017Q3

REPORT INFORMATION
  Report Type: Report from Study
  Country: US (occurrence: US)
  Receive Date: 20160622
  Receipt Date: 20170721
  Transmission Date: 20171127
  Serious: Yes (Other)
  Sender: FDA-Public Use
  Company Number: US-AMGEN-USASL2016077939

PATIENT
  Age: 59 Year
  Sex: Male

DRUGS (3)
  1. MTX [Concomitant]
     Active Substance: METHOTREXATE SODIUM
     Dosage: UNK
  2. THRIVE [Concomitant]
     Active Substance: NICOTINE
     Dosage: UNK
  3. ENBREL [Suspect]
     Active Substance: ETANERCEPT
     Indication: RHEUMATOID ARTHRITIS
     Dosage: 50 MG, QWK
     Route: 065
     Dates: start: 20151016

REACTIONS (18)
  - Acne pustular [Unknown]
  - Back pain [Unknown]
  - Paranasal sinus hypersecretion [Unknown]
  - Blister [Unknown]
  - Nasopharyngitis [Unknown]
  - Melanocytic naevus [Unknown]
  - Abdominal pain upper [Unknown]
  - Acne [Not Recovered/Not Resolved]
  - Musculoskeletal pain [Not Recovered/Not Resolved]
  - Contusion [Unknown]
  - Cough [Unknown]
  - Fatigue [Unknown]
  - Carpal tunnel syndrome [Not Recovered/Not Resolved]
  - Pain in extremity [Unknown]
  - Chest pain [Unknown]
  - Furuncle [Unknown]
  - Scar [Unknown]
  - Nasal disorder [Unknown]

NARRATIVE: CASE EVENT DATE: 2016
